FAERS Safety Report 7042119-5 (Version None)
Quarter: 2010Q4

REPORT INFORMATION
  Report Type: 
  Country: None (occurrence: None)
  Receive Date: 20101013
  Receipt Date: 20091124
  Transmission Date: 20110411
  Serious: No
  Sender: FDA-Public Use
  Company Number: US-ASTRAZENECA-2009SE28594

PATIENT
  Sex: Female

DRUGS (6)
  1. SYMBICORT [Suspect]
     Indication: CHRONIC OBSTRUCTIVE PULMONARY DISEASE
     Dosage: TOTAL DAILY DOSE 640 MCG, 2 PUFFS
     Route: 055
  2. EYE VITAMIN [Concomitant]
  3. LASIX [Concomitant]
  4. LEVOTHYROXINE [Concomitant]
  5. METOPROLOL [Concomitant]
  6. CALTRATE [Concomitant]

REACTIONS (2)
  - ARTHRITIS [None]
  - DRUG DOSE OMISSION [None]
